FAERS Safety Report 9101510 (Version 2)
Quarter: 2013Q2

REPORT INFORMATION
  Report Type: Spontaneous
  Country: US (occurrence: US)
  Receive Date: 20130218
  Receipt Date: 20130517
  Transmission Date: 20140414
  Serious: Yes (Death)
  Sender: FDA-Public Use
  Company Number: US-COVIDIEN/TYCO HEALTHCARE/MALLINCKRODT-T201300602

PATIENT
  Age: 56 Year
  Sex: Female

DRUGS (5)
  1. FENTANYL TRANSDERMAL SYSTEM [Suspect]
     Dosage: UNK
  2. TRAMADOL [Suspect]
  3. ALPRAZOLAM [Suspect]
  4. DIAZEPAM [Suspect]
  5. CYCLOBENZAPRINE [Suspect]

REACTIONS (1)
  - Drug abuse [Fatal]
